FAERS Safety Report 8850307 (Version 4)
Quarter: 2014Q2

REPORT INFORMATION
  Report Type: Spontaneous
  Country: US (occurrence: US)
  Receive Date: 20121019
  Receipt Date: 20140606
  Transmission Date: 20141212
  Serious: Yes (Life-Threatening, Hospitalization, Other)
  Sender: FDA-Public Use
  Company Number: US-ASTRAZENECA-2012SE79077

PATIENT
  Age: 57 Year
  Sex: Male
  Weight: 192.8 kg

DRUGS (14)
  1. RHINOCORT AQUA [Suspect]
     Route: 045
  2. NEXIUM [Suspect]
     Indication: GASTRIC DISORDER
     Route: 048
     Dates: start: 2004
  3. NEXIUM [Suspect]
     Indication: GASTROOESOPHAGEAL REFLUX DISEASE
     Route: 048
     Dates: start: 2004
  4. EFFEXOR XR [Concomitant]
     Indication: BIPOLAR DISORDER
     Route: 048
     Dates: start: 2004
  5. DEXITROL LA [Concomitant]
     Indication: URINARY INCONTINENCE
     Route: 048
     Dates: start: 2004
  6. CORREG [Concomitant]
     Indication: CARDIAC DISORDER
     Route: 048
     Dates: start: 2004
  7. THEOPHYLLINE ER [Concomitant]
     Indication: LUNG DISORDER
     Route: 048
     Dates: start: 2004
  8. VITAMINS [Concomitant]
     Indication: VITAMIN SUPPLEMENTATION
     Route: 048
  9. POTASSIUM [Concomitant]
     Indication: ELECTROLYTE SUBSTITUTION THERAPY
     Route: 048
     Dates: start: 2004
  10. SPIRONOLACTONE [Concomitant]
     Indication: DIABETES MELLITUS
     Route: 048
     Dates: start: 2004
  11. FUROSEMIDE [Concomitant]
     Indication: POLYURIA
     Route: 048
     Dates: start: 2004
  12. METFORMIN [Concomitant]
     Indication: DIABETES MELLITUS
     Route: 048
     Dates: start: 2004
  13. WARFARIN [Concomitant]
     Indication: ANTICOAGULANT THERAPY
     Route: 048
     Dates: start: 2004
  14. WARFARIN [Concomitant]
     Indication: ANTICOAGULANT THERAPY
     Dosage: 1 MG-3 MG DAILY
     Route: 048
     Dates: start: 2004

REACTIONS (13)
  - Apparent death [Unknown]
  - Cardiomegaly [Unknown]
  - Abdominal hernia [Unknown]
  - Facial bones fracture [Unknown]
  - Generalised oedema [Unknown]
  - Impaired work ability [Unknown]
  - Fatigue [Unknown]
  - Obesity [Unknown]
  - Body height decreased [Unknown]
  - Alcohol abuse [Unknown]
  - Malaise [Recovered/Resolved]
  - Insomnia [Unknown]
  - Intentional product misuse [Recovered/Resolved]
